FAERS Safety Report 5480774-1 (Version None)
Quarter: 2007Q4

REPORT INFORMATION
  Report Type: 
  Country: None (occurrence: None)
  Receive Date: 20071009
  Receipt Date: 20071009
  Transmission Date: 20080405
  Serious: Yes (Other)
  Sender: FDA-Public Use
  Company Number: US-SHR-US-2007-027051

PATIENT
  Sex: Female

DRUGS (1)
  1. YAZ [Suspect]
     Dosage: 1 TAB(S), 1X/DAY
     Route: 048
     Dates: start: 20070705

REACTIONS (2)
  - AGGRESSION [None]
  - HALO VISION [None]
